FAERS Safety Report 14547423 (Version 17)
Quarter: 2020Q2

REPORT INFORMATION
  Report Type: Spontaneous
  Country: US (occurrence: US)
  Receive Date: 20180219
  Receipt Date: 20200519
  Transmission Date: 20200713
  Serious: Yes (Hospitalization, Other)
  Sender: FDA-Public Use
  Company Number: US-PFIZER INC-2017472331

PATIENT
  Age: 80 Year
  Sex: Male
  Weight: 79 kg

DRUGS (8)
  1. BOSULIF [Suspect]
     Active Substance: BOSUTINIB MONOHYDRATE
     Dosage: 100 MG, 1X/DAY
     Route: 048
     Dates: start: 2018, end: 2018
  2. BOSULIF [Suspect]
     Active Substance: BOSUTINIB MONOHYDRATE
     Dosage: 100 MG, 3X/DAY
     Route: 048
     Dates: start: 20181005
  3. BOSULIF [Suspect]
     Active Substance: BOSUTINIB MONOHYDRATE
     Dosage: UNK
  4. BOSULIF [Suspect]
     Active Substance: BOSUTINIB MONOHYDRATE
     Dosage: 300 MG, 1X/DAY (100 MG; THREE TABLETS ONCE A DAY)
     Route: 048
     Dates: start: 2018
  5. BOSULIF [Suspect]
     Active Substance: BOSUTINIB MONOHYDRATE
     Dosage: 300 MG, 1X/DAY (300MG BY MOUTH DAILY)
     Route: 048
     Dates: start: 20171005
  6. BOSULIF [Suspect]
     Active Substance: BOSUTINIB MONOHYDRATE
     Dosage: 400 MG, 1X/DAY
     Route: 048
     Dates: end: 2018
  7. BOSULIF [Suspect]
     Active Substance: BOSUTINIB MONOHYDRATE
     Indication: CHRONIC MYELOID LEUKAEMIA
     Dosage: 500 MG, 1X/DAY
     Route: 048
  8. BOSULIF [Suspect]
     Active Substance: BOSUTINIB MONOHYDRATE
     Dosage: 300 MG, DAILY
     Dates: start: 20190711, end: 2019

REACTIONS (11)
  - Intervertebral disc protrusion [Unknown]
  - Prostate cancer [Unknown]
  - Second primary malignancy [Unknown]
  - Blood count abnormal [Unknown]
  - Gait inability [Unknown]
  - Platelet count decreased [Unknown]
  - Neoplasm progression [Unknown]
  - Arthropathy [Unknown]
  - Bladder disorder [Unknown]
  - Arthritis infective [Unknown]
  - Diarrhoea [Not Recovered/Not Resolved]

NARRATIVE: CASE EVENT DATE: 2018
